FAERS Safety Report 24767162 (Version 1)
Quarter: 2024Q4

REPORT INFORMATION
  Report Type: Spontaneous
  Country: US (occurrence: US)
  Receive Date: 20241223
  Receipt Date: 20241223
  Transmission Date: 20250115
  Serious: Yes (Other)
  Sender: NOVARTIS
  Company Number: US-002147023-NVSC2024US239783

PATIENT
  Sex: Male

DRUGS (2)
  1. PLUVICTO [Suspect]
     Active Substance: LUTETIUM LU-177 VIPIVOTIDE TETRAXETAN
     Indication: Product used for unknown indication
     Dosage: UNK
     Route: 065
  2. ORGOVYX [Concomitant]
     Active Substance: RELUGOLIX
     Indication: Product used for unknown indication
     Dosage: NO ORGOVYX TILL 02/24 Q.3 DAYS ( WAS Q4D DUE TO MISCOMMUN) 05/24RESTART--WENT TO 48 HOURS OCT 2024 N
     Route: 065

REACTIONS (1)
  - Bone cancer metastatic [Unknown]
